FAERS Safety Report 25548790 (Version 2)
Quarter: 2025Q3

REPORT INFORMATION
  Report Type: Report from Study
  Country: EU (occurrence: EU)
  Receive Date: 20250714
  Receipt Date: 20250718
  Transmission Date: 20251021
  Serious: Yes (Other)
  Sender: MYLAN
  Company Number: EU-MYLANLABS-2025M1057981

PATIENT
  Age: 65 Year
  Sex: Male

DRUGS (5)
  1. REMIFENTANIL [Interacting]
     Active Substance: REMIFENTANIL
     Indication: Anaesthesia
  2. CISATRACURIUM [Interacting]
     Active Substance: CISATRACURIUM
     Indication: Anaesthesia
  3. AMITRIPTYLINE [Interacting]
     Active Substance: AMITRIPTYLINE
     Indication: Diabetic neuropathy
  4. PROPOFOL [Interacting]
     Active Substance: PROPOFOL
     Indication: Anaesthesia
  5. SEVOFLURANE [Interacting]
     Active Substance: SEVOFLURANE
     Indication: Anaesthesia

REACTIONS (2)
  - Hypotension [Unknown]
  - Drug interaction [Unknown]
